FAERS Safety Report 9709649 (Version 3)
Quarter: 2014Q1

REPORT INFORMATION
  Report Type: Spontaneous
  Country: CZ (occurrence: CZ)
  Receive Date: 20131126
  Receipt Date: 20140108
  Transmission Date: 20141002
  Serious: Yes (Death, Other)
  Sender: FDA-Public Use
  Company Number: PHHY2013CZ133057

PATIENT
  Age: 56 Year
  Sex: Female

DRUGS (7)
  1. ZOMETA [Suspect]
     Indication: BREAST CANCER
     Dosage: 4 MG/KG, IN INTERVAL OF 28 DAYS
     Route: 041
     Dates: start: 20080712
  2. ZOMETA [Suspect]
     Dosage: 4 MG, EVERY 12 WEEKS
     Route: 041
     Dates: start: 201111, end: 20120311
  3. ZOMETA [Suspect]
     Dosage: 7.5 MG/M2, FOR EVERY 21 DAYS
  4. PACLITAXEL [Suspect]
     Indication: BREAST CANCER
     Dosage: 90 MG/M2, WEEK-DAY 1+8+15
     Dates: start: 20080712, end: 20111106
  5. AVASTIN [Suspect]
     Indication: BREAST CANCER
     Dosage: 10 MG/KG, DAY 1+15 IN INTERVAL OF 28 DAYS
     Dates: start: 20080712, end: 20111106
  6. CARBOPLATIN [Suspect]
  7. DOCETAXEL [Suspect]
     Dosage: 75 MG/M2

REACTIONS (17)
  - Breast cancer [Fatal]
  - Malignant neoplasm progression [Fatal]
  - Weight decreased [Fatal]
  - Nausea [Fatal]
  - Decreased appetite [Fatal]
  - Venous thrombosis [Unknown]
  - Neurotoxicity [Unknown]
  - Metastases to liver [Unknown]
  - Liver disorder [Not Recovered/Not Resolved]
  - Osteonecrosis of jaw [Unknown]
  - Epistaxis [Unknown]
  - Peripheral sensory neuropathy [Not Recovered/Not Resolved]
  - Peripheral motor neuropathy [Unknown]
  - Abdominal pain [Unknown]
  - Pain in extremity [Unknown]
  - Hypertension [Not Recovered/Not Resolved]
  - Drug ineffective [Unknown]
